FAERS Safety Report 9931051 (Version 3)
Quarter: 2014Q1

REPORT INFORMATION
  Report Type: Report from Study
  Country: DE (occurrence: DE)
  Receive Date: 20140227
  Receipt Date: 20140306
  Transmission Date: 20141002
  Serious: Yes (Other)
  Sender: FDA-Public Use
  Company Number: PHHY2013DE028690

PATIENT
  Sex: Male
  Weight: 48 kg

DRUGS (3)
  1. AMN107 [Suspect]
     Indication: CHRONIC MYELOID LEUKAEMIA
     Dosage: 800 MG, DAILY
     Route: 048
     Dates: start: 20080604
  2. AMN107 [Suspect]
     Dosage: 300 MG, DAILY
     Route: 048
     Dates: start: 20080917, end: 20081120
  3. AMN107 [Suspect]
     Dates: end: 20090105

REACTIONS (7)
  - Emphysema [Recovered/Resolved]
  - Pleural effusion [Recovered/Resolved]
  - Rib fracture [Recovered/Resolved]
  - Cachexia [Recovered/Resolved]
  - Oedema [Recovered/Resolved]
  - Skin reaction [Recovered/Resolved]
  - Fall [Recovered/Resolved]
